FAERS Safety Report 8508876-3 (Version None)
Quarter: 2012Q3

REPORT INFORMATION
  Report Type: 
  Country: None (occurrence: None)
  Receive Date: 20120703
  Receipt Date: 20120618
  Transmission Date: 20120928
  Serious: Yes (Life-Threatening, Hospitalization, Disabling, Other)
  Sender: FDA-Public Use
  Company Number: 2012P1010991

PATIENT
  Age: 62 Year
  Sex: Female

DRUGS (2)
  1. LAMOTRIGINE [Suspect]
     Indication: DEPRESSION
     Dosage: 25 MG;QD
     Dates: start: 20100331, end: 20100101
  2. EFFEXOR [Suspect]
     Indication: DEPRESSION

REACTIONS (10)
  - TOXIC EPIDERMAL NECROLYSIS [None]
  - INFLUENZA LIKE ILLNESS [None]
  - OCULAR SURFACE DISEASE [None]
  - OFF LABEL USE [None]
  - IMPAIRED WORK ABILITY [None]
  - BLINDNESS [None]
  - STEVENS-JOHNSON SYNDROME [None]
  - PAIN [None]
  - EMOTIONAL DISORDER [None]
  - SCAR [None]
